FAERS Safety Report 9204836 (Version 1)
Quarter: 2013Q2

REPORT INFORMATION
  Report Type: Spontaneous
  Country: US (occurrence: US)
  Receive Date: 20130402
  Receipt Date: 20130402
  Transmission Date: 20140414
  Serious: No
  Sender: FDA-Public Use
  Company Number: US-009507513-1304USA000161

PATIENT
  Sex: Male

DRUGS (1)
  1. AZASITE [Suspect]
     Indication: BLEPHARITIS
     Dosage: 2 DROPS IN AFFECTED EYE FOR 14 DAYS, QD
     Route: 031
     Dates: start: 20130317

REACTIONS (5)
  - Drug dose omission [Unknown]
  - Drug prescribing error [Unknown]
  - Product quality issue [Unknown]
  - Off label use [Unknown]
  - No adverse event [Unknown]
